FAERS Safety Report 14776684 (Version 1)
Quarter: 2018Q2

REPORT INFORMATION
  Report Type: Spontaneous
  Country: FR (occurrence: FR)
  Receive Date: 20180419
  Receipt Date: 20180419
  Transmission Date: 20180711
  Serious: Yes (Other)
  Sender: FDA-Public Use
  Company Number: FR-MERCK KGAA-2045993

PATIENT
  Age: 35 Year
  Sex: Female

DRUGS (1)
  1. NOVOTHYROX [Suspect]
     Active Substance: LEVOTHYROXINE SODIUM
     Indication: THYROIDECTOMY
     Dates: start: 201703

REACTIONS (6)
  - Chest pain [None]
  - Hyperthyroidism [Not Recovered/Not Resolved]
  - Mania [None]
  - Hypothyroidism [Not Recovered/Not Resolved]
  - Social avoidant behaviour [None]
  - Loss of personal independence in daily activities [None]

NARRATIVE: CASE EVENT DATE: 2017
